FAERS Safety Report 5534280-6 (Version None)
Quarter: 2007Q4

REPORT INFORMATION
  Report Type: 
  Country: None (occurrence: None)
  Receive Date: 20071205
  Receipt Date: 20071127
  Transmission Date: 20080405
  Serious: Yes (Life-Threatening, Hospitalization)
  Sender: FDA-Public Use
  Company Number: US-ROCHE-505531

PATIENT
  Age: 44 Year
  Sex: Female
  Weight: 83 kg

DRUGS (10)
  1. PEGASYS [Suspect]
     Route: 058
     Dates: start: 20060927, end: 20070315
  2. RIBAVIRIN [Suspect]
     Route: 048
     Dates: start: 20060927, end: 20070315
  3. LITHIUM CARBONATE [Interacting]
     Indication: BIPOLAR DISORDER
     Dosage: ^DOSE STABLE ON FOR YEARS^
     Route: 048
  4. LITHIUM CARBONATE [Interacting]
     Route: 048
  5. CELEXA [Concomitant]
     Indication: BIPOLAR DISORDER
     Dosage: REPORTED AS 30 QD
     Route: 048
  6. EFFEXOR [Concomitant]
     Indication: BIPOLAR DISORDER
     Route: 048
  7. BACLOFEN [Concomitant]
     Indication: DRUG USE FOR UNKNOWN INDICATION
  8. ZANTAC [Concomitant]
     Indication: DRUG USE FOR UNKNOWN INDICATION
  9. ATENOLOL [Concomitant]
     Indication: DRUG USE FOR UNKNOWN INDICATION
  10. VASOTEC [Concomitant]
     Indication: DRUG USE FOR UNKNOWN INDICATION

REACTIONS (4)
  - ABNORMAL BEHAVIOUR [None]
  - BLOOD THYROID STIMULATING HORMONE INCREASED [None]
  - NEUROLEPTIC MALIGNANT SYNDROME [None]
  - THERAPEUTIC AGENT TOXICITY [None]
